FAERS Safety Report 8222836-1 (Version None)
Quarter: 2012Q1

REPORT INFORMATION
  Report Type: 
  Country: None (occurrence: None)
  Receive Date: 20120320
  Receipt Date: 20120315
  Transmission Date: 20120608
  Serious: Yes (Other)
  Sender: FDA-Public Use
  Company Number: US-ABBOTT-12P-163-0915770-00

PATIENT
  Sex: Female
  Weight: 121.67 kg

DRUGS (13)
  1. HUMIRA [Suspect]
     Indication: CROHN'S DISEASE
     Dates: start: 20110525, end: 20120213
  2. ZOFRAN [Concomitant]
     Indication: NAUSEA
     Route: 048
     Dates: start: 20110720, end: 20110726
  3. SUDAFED 12 HOUR [Concomitant]
     Indication: NASOPHARYNGITIS
     Route: 048
     Dates: start: 20111209, end: 20111211
  4. FLUVIRIN VACCINE (WITH THIMEROSAL) [Concomitant]
     Indication: PRODUCT USED FOR UNKNOWN INDICATION
     Route: 050
     Dates: start: 20111104, end: 20111104
  5. FOLIC ACID [Concomitant]
     Indication: PRODUCT USED FOR UNKNOWN INDICATION
     Route: 048
     Dates: start: 20110525, end: 20120227
  6. CAFFEINE [Concomitant]
     Indication: PRODUCT USED FOR UNKNOWN INDICATION
     Route: 048
     Dates: start: 20110823, end: 20120227
  7. PROGESTERONE [Concomitant]
     Indication: INFERTILITY
     Route: 050
     Dates: start: 20110525, end: 20110630
  8. MULTI-VITAMINS [Concomitant]
     Indication: PRODUCT USED FOR UNKNOWN INDICATION
     Route: 048
     Dates: start: 20110525, end: 20120227
  9. CHORIONIC GONADOTROPIN [Concomitant]
     Indication: INFERTILITY
     Route: 050
     Dates: start: 20110525, end: 20110605
  10. GUAIFENESIN [Concomitant]
     Indication: NASOPHARYNGITIS
     Route: 048
     Dates: start: 20111209, end: 20111212
  11. TYLENOL [Concomitant]
     Indication: HEADACHE
     Route: 048
     Dates: start: 20110525, end: 20120227
  12. DHA [Concomitant]
     Indication: PRODUCT USED FOR UNKNOWN INDICATION
     Route: 048
     Dates: start: 20110525, end: 20120227
  13. CALCIUM CARBONATE [Concomitant]
     Indication: DYSPEPSIA
     Route: 048
     Dates: start: 20110525, end: 20111129

REACTIONS (6)
  - NAUSEA [None]
  - NASOPHARYNGITIS [None]
  - DYSPEPSIA [None]
  - ABORTION SPONTANEOUS [None]
  - RESPIRATORY TRACT INFECTION [None]
  - HEADACHE [None]
